FAERS Safety Report 6842170-1 (Version None)
Quarter: 2010Q3

REPORT INFORMATION
  Report Type: 
  Country: None (occurrence: None)
  Receive Date: 20100714
  Receipt Date: 20070906
  Transmission Date: 20110219
  Serious: Yes (Other)
  Sender: FDA-Public Use
  Company Number: US-PFIZER INC-2007060292

PATIENT
  Sex: Female
  Weight: 72.727 kg

DRUGS (4)
  1. CHANTIX [Suspect]
     Indication: SMOKING CESSATION THERAPY
     Route: 048
     Dates: start: 20070706
  2. LEVOXYL [Concomitant]
     Dosage: DAILY
  3. PHENYLEPHRINE [Concomitant]
  4. NASONEX [Concomitant]

REACTIONS (2)
  - HEADACHE [None]
  - VISUAL IMPAIRMENT [None]
